FAERS Safety Report 4679348-1 (Version None)
Quarter: 2005Q2

REPORT INFORMATION
  Report Type: 
  Country: None (occurrence: None)
  Receive Date: 20050602
  Receipt Date: 20050505
  Transmission Date: 20051028
  Serious: Yes (Life-Threatening, Hospitalization, Other)
  Sender: FDA-Public Use
  Company Number: US-GLAXOSMITHKLINE-A0557296A

PATIENT
  Age: 49 Year
  Sex: Male
  Weight: 136.4 kg

DRUGS (8)
  1. DIGOXIN [Suspect]
     Indication: CARDIAC FAILURE CONGESTIVE
  2. DIGIBIND [Suspect]
     Indication: THERAPEUTIC AGENT TOXICITY
     Dosage: 6160MG AS REQUIRED
     Route: 042
     Dates: start: 20050504
  3. VERELAN [Suspect]
     Indication: DRUG USE FOR UNKNOWN INDICATION
     Dosage: 100MG PER DAY
     Route: 048
  4. POTASSIUM CHLORIDE [Concomitant]
     Dosage: 20MEQ TWICE PER DAY
     Route: 048
  5. PLAVIX [Concomitant]
     Dosage: 75MG PER DAY
     Route: 048
  6. BUMEX [Concomitant]
     Dosage: 2.5MG TWICE PER DAY
     Route: 048
  7. ZAROXOLYN [Concomitant]
     Dosage: 2.5MG PER DAY
     Route: 048
  8. METOPROLOL [Concomitant]
     Dosage: 25MG TWICE PER DAY
     Route: 048

REACTIONS (8)
  - BLOOD PRESSURE DECREASED [None]
  - HEART RATE DECREASED [None]
  - MULTIPLE DRUG OVERDOSE [None]
  - NAUSEA [None]
  - OVERDOSE [None]
  - RENAL FAILURE [None]
  - THERAPEUTIC AGENT TOXICITY [None]
  - VOMITING [None]
